FAERS Safety Report 24369300 (Version 1)
Quarter: 2024Q3

REPORT INFORMATION
  Report Type: Report from Study
  Country: US (occurrence: US)
  Receive Date: 20240927
  Receipt Date: 20240927
  Transmission Date: 20241016
  Serious: No
  Sender: ROCHE
  Company Number: US-ROCHE-3439276

PATIENT
  Age: 53 Year
  Sex: Female

DRUGS (2)
  1. LUCENTIS [Suspect]
     Active Substance: RANIBIZUMAB
     Indication: Diabetic retinopathy
     Dosage: DATE OF TREATMENT: 18/SEP/2023
     Route: 065
     Dates: start: 20221003
  2. LUCENTIS [Suspect]
     Active Substance: RANIBIZUMAB
     Indication: Macular oedema
     Dosage: EVERY 5-6 WEEKS? FREQUENCY TEXT:EVERY 5-6 WEEKS
     Route: 065

REACTIONS (3)
  - Vision blurred [Unknown]
  - Off label use [Unknown]
  - Visual impairment [Unknown]
